FAERS Safety Report 20973079 (Version 2)
Quarter: 2022Q3

REPORT INFORMATION
  Report Type: Spontaneous
  Country: US (occurrence: US)
  Receive Date: 20220617
  Receipt Date: 20220704
  Transmission Date: 20221026
  Serious: Yes (Hospitalization)
  Sender: FDA-Public Use
  Company Number: US-SPECGX-T202201363

PATIENT
  Age: 59 Year
  Sex: Male
  Weight: 77 kg

DRUGS (7)
  1. ACETAMINOPHEN AND CODEINE [Suspect]
     Active Substance: ACETAMINOPHEN\CODEINE PHOSPHATE
     Indication: Pain
     Dosage: 1 DOSAGE FORM, PRN (Q6H)
     Route: 048
     Dates: start: 20220419
  2. ACETAMINOPHEN AND CODEINE [Suspect]
     Active Substance: ACETAMINOPHEN\CODEINE PHOSPHATE
     Dosage: 1 DOSAGE FORM, PRN (Q6H)
     Route: 048
     Dates: start: 20220422, end: 20220422
  3. PLAVIX [Concomitant]
     Active Substance: CLOPIDOGREL BISULFATE
     Indication: Product used for unknown indication
     Dosage: 15 MILLIGRAM, BID
     Route: 065
  4. METOPROLOL [Concomitant]
     Active Substance: METOPROLOL
     Indication: Product used for unknown indication
     Dosage: 2.5 MILLIGRAM
     Route: 065
  5. ENALAPRIL [Concomitant]
     Active Substance: ENALAPRIL
     Indication: Product used for unknown indication
     Dosage: 2.5 MILLIGRAM, QD
     Route: 065
  6. TYLENOL WITH CODEINE [Concomitant]
     Active Substance: ACETAMINOPHEN\CODEINE PHOSPHATE
     Indication: Tooth disorder
     Dosage: UNK
     Route: 065
  7. ST. JOHN^S WORT [Concomitant]
     Active Substance: ST. JOHN^S WORT
     Indication: Depression
     Dosage: UNK
     Route: 065

REACTIONS (12)
  - Deafness [Recovering/Resolving]
  - Amnesia [Unknown]
  - Spinal fracture [Unknown]
  - Coma [Recovered/Resolved]
  - Cognitive disorder [Unknown]
  - Leukocytosis [Unknown]
  - Hallucination [Unknown]
  - Dizziness [Unknown]
  - Headache [Unknown]
  - Generalised tonic-clonic seizure [Unknown]
  - Mental status changes [Unknown]
  - Back injury [Unknown]

NARRATIVE: CASE EVENT DATE: 20220401
